FAERS Safety Report 6672967-2 (Version None)
Quarter: 2010Q2

REPORT INFORMATION
  Report Type: 
  Country: None (occurrence: None)
  Receive Date: 20100408
  Receipt Date: 20100405
  Transmission Date: 20101027
  Serious: Yes (Other)
  Sender: FDA-Public Use
  Company Number: A0853788A

PATIENT
  Age: 49 Year
  Sex: Female
  Weight: 113.6 kg

DRUGS (1)
  1. AVANDIA [Suspect]
     Indication: TYPE 2 DIABETES MELLITUS
     Route: 048
     Dates: start: 20010524, end: 20030806

REACTIONS (7)
  - ANGINA PECTORIS [None]
  - BLOOD GLUCOSE INCREASED [None]
  - CARDIAC FAILURE CONGESTIVE [None]
  - HYPOAESTHESIA [None]
  - MUSCLE SPASMS [None]
  - NAUSEA [None]
  - PAIN [None]
